FAERS Safety Report 14371520 (Version 2)
Quarter: 2018Q4

REPORT INFORMATION
  Report Type: Spontaneous
  Country: US (occurrence: US)
  Receive Date: 20180110
  Receipt Date: 20181010
  Transmission Date: 20190204
  Serious: Yes (Hospitalization, Other)
  Sender: FDA-Public Use
  Company Number: US-ZYDUS-018680

PATIENT
  Age: 42 Year
  Sex: Female

DRUGS (1)
  1. MORPHINE/MORPHINE HYDROCHLORIDE/MORPHINE SULFATE/MORPHINE TARTRATE [Suspect]
     Active Substance: MORPHINE\MORPHINE HYDROCHLORIDE\MORPHINE SULFATE\MORPHINE TARTRATE
     Indication: ABDOMINAL PAIN
     Route: 037

REACTIONS (12)
  - Anaesthesia [Recovered/Resolved]
  - Radiculopathy [Recovered/Resolved]
  - Spinal cord oedema [Recovered/Resolved]
  - Constipation [Recovered/Resolved]
  - Granuloma [Recovered/Resolved]
  - Limb discomfort [Recovered/Resolved]
  - Urinary retention [Recovered/Resolved]
  - Spinal cord compression [Recovered/Resolved]
  - Hypokinesia [Recovered/Resolved]
  - Hypoaesthesia [Recovered/Resolved]
  - Asthenia [Recovered/Resolved]
  - Catheter site mass [Recovered/Resolved]
